FAERS Safety Report 7178992-X (Version None)
Quarter: 2010Q4

REPORT INFORMATION
  Report Type: 
  Country: None (occurrence: None)
  Receive Date: 20101221
  Receipt Date: 20100930
  Transmission Date: 20110411
  Serious: Yes (Hospitalization)
  Sender: FDA-Public Use
  Company Number: US-BAYER-201038218NA

PATIENT
  Sex: Female
  Weight: 63.636 kg

DRUGS (8)
  1. YAZ [Suspect]
     Route: 048
  2. YASMIN [Suspect]
     Indication: ACNE
     Route: 048
     Dates: start: 20020201, end: 20030101
  3. YASMIN [Suspect]
     Indication: CONTRACEPTION
  4. LEXAPRO [Concomitant]
  5. WELLBUTRIN SR [Concomitant]
     Dates: start: 20020201
  6. BEXTRA [Concomitant]
     Dates: start: 20031008
  7. COLACE [Concomitant]
  8. TRANXENE [Concomitant]

REACTIONS (21)
  - ABDOMINAL PAIN [None]
  - ANXIETY [None]
  - ATELECTASIS [None]
  - CHOLECYSTITIS [None]
  - HAEMODYNAMIC INSTABILITY [None]
  - HAEMORRHAGIC TUMOUR NECROSIS [None]
  - HEPATIC ADENOMA [None]
  - HEPATIC HAEMATOMA [None]
  - HYPERTROPHIC SCAR [None]
  - HYPOVOLAEMIC SHOCK [None]
  - INCISION SITE PAIN [None]
  - LIVER DISORDER [None]
  - MENTAL DISORDER [None]
  - PERITONEAL HAEMORRHAGE [None]
  - PLEURAL EFFUSION [None]
  - PULMONARY CONGESTION [None]
  - RESPIRATORY DISTRESS [None]
  - SINUS TACHYCARDIA [None]
  - SPLENOMEGALY [None]
  - THROMBOSIS [None]
  - TUMOUR RUPTURE [None]
